FAERS Safety Report 15122436 (Version 1)
Quarter: 2018Q3

REPORT INFORMATION
  Report Type: Spontaneous
  Country: FR (occurrence: FR)
  Receive Date: 20180709
  Receipt Date: 20180709
  Transmission Date: 20181010
  Serious: Yes (Other)
  Sender: FDA-Public Use
  Company Number: FR-TEVA-2018-FR-923191

PATIENT
  Age: 91 Year
  Sex: Female

DRUGS (8)
  1. COVERSYL 2,5 MG, COMPRIM? PELLICUL? [Concomitant]
     Active Substance: PERINDOPRIL
  2. BISOPROLOL (FUMARATE DE) [Suspect]
     Active Substance: BISOPROLOL FUMARATE
     Indication: HYPERTENSION
     Dosage: 5 MILLIGRAM DAILY;
     Route: 065
     Dates: start: 201706, end: 20171116
  3. IPRATROPIUM (BROMURE D^) [Concomitant]
     Active Substance: IPRATROPIUM
  4. PREVISCAN 20 MG, COMPRIM? S?CABLE [Concomitant]
     Active Substance: FLUINDIONE
  5. PULMICORT TURBUHALER [Concomitant]
     Active Substance: BUDESONIDE
  6. SALBUTAMOL [Concomitant]
     Active Substance: ALBUTEROL
  7. DOLIPRANE 100 MG, POUDRE POUR SOLUTION BUVABLE EN SACHET?DOSE [Concomitant]
  8. FUROSEMIDE. [Concomitant]
     Active Substance: FUROSEMIDE

REACTIONS (1)
  - Interstitial lung disease [Recovered/Resolved]

NARRATIVE: CASE EVENT DATE: 20170929
